FAERS Safety Report 5503053-2 (Version None)
Quarter: 2007Q4

REPORT INFORMATION
  Report Type: 
  Country: None (occurrence: None)
  Receive Date: 20071031
  Receipt Date: 20071019
  Transmission Date: 20080405
  Serious: Yes (Other)
  Sender: FDA-Public Use
  Company Number: DE-ROCHE-526702

PATIENT
  Age: 69 Year
  Sex: Female

DRUGS (1)
  1. IBANDRONATE SODIUM [Suspect]
     Route: 042
     Dates: start: 20061201, end: 20070201

REACTIONS (1)
  - OSTEONECROSIS [None]
